FAERS Safety Report 19984818 (Version 1)
Quarter: 2021Q4

REPORT INFORMATION
  Report Type: Spontaneous
  Country: US (occurrence: US)
  Receive Date: 20211022
  Receipt Date: 20211022
  Transmission Date: 20220303
  Serious: Yes (Other)
  Sender: FDA-Public Use
  Company Number: None

PATIENT
  Age: 6 Year
  Sex: Female

DRUGS (1)
  1. GAVILAX [Suspect]
     Active Substance: POLYETHYLENE GLYCOL 3350
     Indication: Constipation
     Dosage: ?          QUANTITY:17 GRAMS;
     Route: 048
     Dates: start: 20160420, end: 20200516

REACTIONS (2)
  - Anxiety [None]
  - Anger [None]

NARRATIVE: CASE EVENT DATE: 20191229
